FAERS Safety Report 9882989 (Version 1)
Quarter: 2014Q1

REPORT INFORMATION
  Report Type: Spontaneous
  Country: US (occurrence: None)
  Receive Date: 20140204
  Receipt Date: 20140204
  Transmission Date: 20141002
  Serious: Yes (Other)
  Sender: FDA-Public Use
  Company Number: 2014AP000797

PATIENT
  Sex: Female

DRUGS (10)
  1. ALENDRONIC ACID (ALENDRONIC ACID) [Suspect]
     Indication: OSTEOPOROSIS
     Route: 048
     Dates: start: 201308, end: 201309
  2. CALCICHEW D3 [Suspect]
     Indication: OSTEOPOROSIS
     Route: 048
     Dates: start: 201308, end: 201309
  3. PANZYTRAT [Concomitant]
  4. RABEPRAZOLE (RABEPRAZOLE) [Concomitant]
  5. RAMIPRIL (RAMIPRIL) [Concomitant]
  6. VALSARTAN (VALSARTAN) [Suspect]
  7. FRONTIN (ALPRAZOLAM) [Concomitant]
  8. ASTRIX (ACETYLSALICYLIC ACID) [Concomitant]
  9. TRAMADOL (TRAMADOL) [Concomitant]
  10. TOLPERISONE HYDROCHLORIDE (TOLPERISONE HYDROCHLORIDE) [Concomitant]

REACTIONS (2)
  - Abasia [None]
  - Dizziness [None]
